FAERS Safety Report 8152818-X (Version None)
Quarter: 2012Q1

REPORT INFORMATION
  Report Type: 
  Country: None (occurrence: None)
  Receive Date: 20120221
  Receipt Date: 20120215
  Transmission Date: 20120608
  Serious: Yes (Hospitalization, Other)
  Sender: FDA-Public Use
  Company Number: US-SANOFI-AVENTIS-2012SA010147

PATIENT
  Sex: Male
  Weight: 83 kg

DRUGS (2)
  1. TAMSULOSIN HCL [Concomitant]
     Indication: MICTURITION DISORDER
     Dates: start: 20101001
  2. LEUPROLIDE ACETATE [Suspect]
     Dosage: FREQUENCY: EVERY 3 MONTHS
     Route: 065
     Dates: start: 20110120

REACTIONS (2)
  - URINARY RETENTION [None]
  - PROSTATIC ADENOMA [None]
